FAERS Safety Report 8287237-9 (Version None)
Quarter: 2012Q2

REPORT INFORMATION
  Report Type: 
  Country: None (occurrence: None)
  Receive Date: 20120411
  Receipt Date: 20120328
  Transmission Date: 20120825
  Serious: Yes (Death)
  Sender: FDA-Public Use
  Company Number: B0793782A

PATIENT

DRUGS (3)
  1. MELPHALAN HYDROCHLORIDE [Suspect]
     Indication: NEUROBLASTOMA
     Dosage: 140 MG/M2
  2. BUSULFAN [Suspect]
     Indication: NEUROBLASTOMA
     Dosage: 600 MG/M2
  3. THIOTEPA [Suspect]
     Indication: NEUROBLASTOMA
     Dosage: 300 MG/M2 / PER DAY

REACTIONS (2)
  - PULMONARY ALVEOLAR HAEMORRHAGE [None]
  - STEM CELL TRANSPLANT [None]
